FAERS Safety Report 13193788 (Version 1)
Quarter: 2017Q1

REPORT INFORMATION
  Report Type: Report from Study
  Country: CA (occurrence: CA)
  Receive Date: 20170207
  Receipt Date: 20170207
  Transmission Date: 20170428
  Serious: Yes (Hospitalization)
  Sender: FDA-Public Use
  Company Number: CA-JNJFOC-20170127204

PATIENT
  Age: 73 Year
  Sex: Male

DRUGS (1)
  1. STELARA [Suspect]
     Active Substance: USTEKINUMAB
     Indication: PSORIASIS
     Route: 058
     Dates: start: 20170107

REACTIONS (6)
  - Axillary mass [Unknown]
  - Thirst [Unknown]
  - Limb mass [Unknown]
  - Pityriasis [Not Recovered/Not Resolved]
  - Lymphoma [Unknown]
  - Dry skin [Unknown]

NARRATIVE: CASE EVENT DATE: 201701
